FAERS Safety Report 19980412 (Version 4)
Quarter: 2021Q4

REPORT INFORMATION
  Report Type: Spontaneous
  Country: DE (occurrence: DE)
  Receive Date: 20211021
  Receipt Date: 20211207
  Transmission Date: 20220304
  Serious: Yes (Other)
  Sender: FDA-Public Use
  Company Number: DE-TORRENT-00021351

PATIENT
  Age: 37 Year
  Sex: Female

DRUGS (4)
  1. OLANZAPINE [Suspect]
     Active Substance: OLANZAPINE
     Indication: Psychotic disorder
     Route: 065
     Dates: start: 202003, end: 2020
  2. RISPERIDONE [Suspect]
     Active Substance: RISPERIDONE
     Indication: Psychotic disorder
     Route: 065
     Dates: start: 202003
  3. LEVOTHYROXINE [Concomitant]
     Active Substance: LEVOTHYROXINE
     Indication: Autoimmune thyroiditis
     Route: 065
  4. PREGABALIN [Concomitant]
     Active Substance: PREGABALIN
     Indication: Hypnotherapy
     Dosage: NIGHTLY
     Route: 065

REACTIONS (6)
  - Weight increased [Recovering/Resolving]
  - Type 2 diabetes mellitus [Recovering/Resolving]
  - Akathisia [Recovering/Resolving]
  - Sleep disorder [Recovering/Resolving]
  - Hallucination, auditory [Recovering/Resolving]
  - Depressed mood [Recovering/Resolving]

NARRATIVE: CASE EVENT DATE: 20200101
